FAERS Safety Report 12801960 (Version 3)
Quarter: 2017Q1

REPORT INFORMATION
  Report Type: Report from Study
  Country: US (occurrence: US)
  Receive Date: 20161003
  Receipt Date: 20170111
  Transmission Date: 20170428
  Serious: No
  Sender: FDA-Public Use
  Company Number: US-JAZZ-2016-US-012124

PATIENT
  Sex: Female

DRUGS (11)
  1. LAMOTRIGINE. [Concomitant]
     Active Substance: LAMOTRIGINE
  2. IBUPROFEN. [Concomitant]
     Active Substance: IBUPROFEN
  3. VIMPAT [Concomitant]
     Active Substance: LACOSAMIDE
  4. CITALOPRAM COREPHARMA [Concomitant]
  5. MAXALT-MLT [Concomitant]
     Active Substance: RIZATRIPTAN BENZOATE
  6. XYREM [Suspect]
     Active Substance: SODIUM OXYBATE
     Dosage: DOSE ADJUSTMENTS
     Route: 048
     Dates: start: 201510, end: 201606
  7. POTASSIUM CL [Concomitant]
     Active Substance: POTASSIUM CHLORIDE
  8. XYREM [Suspect]
     Active Substance: SODIUM OXYBATE
     Indication: SOMNOLENCE
     Dosage: 2.25 G, BID
     Route: 048
     Dates: start: 201510, end: 201510
  9. XYREM [Suspect]
     Active Substance: SODIUM OXYBATE
     Dosage: 4 G, BID
     Route: 048
     Dates: start: 201606
  10. TOPIRAMATE. [Concomitant]
     Active Substance: TOPIRAMATE
  11. TROKENDI [Concomitant]
     Active Substance: TOPIRAMATE

REACTIONS (2)
  - Depression [Not Recovered/Not Resolved]
  - Anxiety [Unknown]
